FAERS Safety Report 4554966-X (Version None)
Quarter: 2005Q1

REPORT INFORMATION
  Report Type: 
  Country: None (occurrence: None)
  Receive Date: 20050114
  Receipt Date: 20041231
  Transmission Date: 20050727
  Serious: Yes (Death, Other)
  Sender: FDA-Public Use
  Company Number: 200510003BBE

PATIENT
  Sex: Male

DRUGS (10)
  1. KOATE [Suspect]
     Indication: HAEMOPHILIA
  2. KONYNE [Suspect]
     Indication: HAEMOPHILIA
  3. FACTOR VIII (BAXTER HEALTHCARE CORPORATION) (FACTOR VIII) [Suspect]
     Indication: HAEMOPHILIA
  4. FACTOR IX (BAXTER HEALTHCARE CORPORATION) (FACTOR IX) [Suspect]
     Indication: HAEMOPHILIA
  5. FACTOR VIII (ARMOUR PHARMACEUTICAL COMPANY) (FACTOR VIII) [Suspect]
     Indication: HAEMOPHILIA
  6. FACTOR IX (ARMOUR PHARMACEUTICAL COMPANY) (FACTOR IX) [Suspect]
     Indication: HAEMOPHILIA
  7. FACTOR VIII (AVENTIS BEHRING LLC) (FACTOR VIII) [Suspect]
     Indication: HAEMOPHILIA
  8. FACTOR IX (AVENTIS BEHRING LLC) (FACTOR IX) [Suspect]
     Indication: HAEMOPHILIA
  9. FACTOR VIII (ALPHA THERAPEUTICS CORPORATION) (FACTOR VIII) [Suspect]
     Indication: HAEMOPHILIA
  10. FACTOR IX (ALPHA THERAPEUTICS CORPORATION) (FACTOR IX) [Suspect]
     Indication: HAEMOPHILIA

REACTIONS (2)
  - ACQUIRED IMMUNODEFICIENCY SYNDROME [None]
  - HIV TEST POSITIVE [None]
